FAERS Safety Report 6147208-5 (Version None)
Quarter: 2009Q2

REPORT INFORMATION
  Report Type: 
  Country: None (occurrence: None)
  Receive Date: 20090407
  Receipt Date: 20090310
  Transmission Date: 20091009
  Serious: No
  Sender: FDA-Public Use
  Company Number: US-TYCO HEALTHCARE/MALLINCKRODT-T200900637

PATIENT
  Sex: Male

DRUGS (1)
  1. METHADOSE [Suspect]

REACTIONS (1)
  - FEELING ABNORMAL [None]
